FAERS Safety Report 7300386-4 (Version None)
Quarter: 2011Q1

REPORT INFORMATION
  Report Type: 
  Country: None (occurrence: None)
  Receive Date: 20110217
  Receipt Date: 20110207
  Transmission Date: 20110831
  Serious: Yes (Other)
  Sender: FDA-Public Use
  Company Number: US-B.I. PHARMACEUTICALS,INC./RIDGEFIELD-2011-BP-03359BP

PATIENT
  Sex: Male

DRUGS (14)
  1. PRADAXA [Suspect]
     Indication: CARDIAC DISORDER
     Dosage: 300 MG
     Route: 048
     Dates: start: 20110129
  2. PROTONIX [Concomitant]
     Indication: GASTROOESOPHAGEAL REFLUX DISEASE
     Dosage: 80 MG
     Route: 048
  3. FLONASE [Concomitant]
     Indication: NASAL POLYPS
     Dosage: 7.5 MG
     Route: 045
  4. TRILIPIX [Concomitant]
     Indication: BLOOD CHOLESTEROL INCREASED
     Dosage: 135 MG
     Route: 048
  5. LENOXIN [Concomitant]
     Indication: CARDIAC DISORDER
     Dosage: 125 MG
     Route: 048
  6. CPAP/O2 [Concomitant]
     Indication: SLEEP APNOEA SYNDROME
  7. SIMVASTATIN [Concomitant]
     Indication: BLOOD CHOLESTEROL INCREASED
     Dosage: 80 MG
     Route: 048
  8. PRIMIDOLOL [Concomitant]
     Indication: CARDIAC DISORDER
     Dosage: 6.25 MG
     Route: 048
  9. BUTANIDE [Concomitant]
     Indication: FLUID RETENTION
     Dosage: 1 MG
     Route: 048
  10. AMBIEN [Concomitant]
     Indication: INSOMNIA
     Dosage: 10 MG
     Route: 048
  11. ASPIRIN [Concomitant]
     Indication: PROPHYLAXIS
     Dosage: 81 MG
     Route: 048
  12. CPAP/O2 [Concomitant]
     Indication: PROPHYLAXIS
     Dosage: 81 NR
     Route: 045
  13. COMBIVENT [Suspect]
     Indication: CHRONIC OBSTRUCTIVE PULMONARY DISEASE
     Dosage: 8 PUF
     Route: 055
     Dates: start: 20020101
  14. KLOR-CON [Concomitant]
     Indication: PROPHYLAXIS
     Dosage: 20 MEQ
     Route: 048

REACTIONS (5)
  - BLOOD PRESSURE INCREASED [None]
  - CARDIAC FLUTTER [None]
  - COUGH [None]
  - MALAISE [None]
  - SINUSITIS [None]
